FAERS Safety Report 8469540-2 (Version None)
Quarter: 2012Q2

REPORT INFORMATION
  Report Type: 
  Country: None (occurrence: None)
  Receive Date: 20120626
  Receipt Date: 20120611
  Transmission Date: 20120825
  Serious: Yes (Hospitalization)
  Sender: FDA-Public Use
  Company Number: IE-ARROW GEN-2012-10329

PATIENT
  Age: 83 Year
  Sex: Female

DRUGS (4)
  1. ACETAMINOPHEN [Suspect]
     Indication: JOINT IRRIGATION
     Dosage: 1 G, Q6H
     Route: 065
  2. IRBESARTAN [Suspect]
     Indication: RENAL IMPAIRMENT
     Dosage: UNK
     Route: 065
  3. METFORMIN HCL [Suspect]
     Indication: DIABETES MELLITUS
     Dosage: UNK
     Route: 065
  4. FLOXACILLIN SODIUM [Suspect]
     Indication: WOUND INFECTION
     Dosage: 2 G, Q6H
     Route: 042

REACTIONS (2)
  - METABOLIC ACIDOSIS [None]
  - URINE ABNORMALITY [None]
